FAERS Safety Report 16417955 (Version 1)
Quarter: 2019Q2

REPORT INFORMATION
  Report Type: Spontaneous
  Country: US (occurrence: US)
  Receive Date: 20190611
  Receipt Date: 20190611
  Transmission Date: 20190711
  Serious: No
  Sender: FDA-Public Use
  Company Number: US-EMCURE PHARMS-2019HTG00028

PATIENT
  Age: 44 Year
  Sex: Female
  Weight: 81.18 kg

DRUGS (12)
  1. HYDROXYZINE PAMOATE. [Suspect]
     Active Substance: HYDROXYZINE PAMOATE
     Indication: CYSTITIS INTERSTITIAL
     Dosage: 25 MG 1X/DAY AT BEDTIME
     Route: 048
     Dates: start: 201809, end: 2018
  2. ESCITALOPRAM [Concomitant]
     Active Substance: ESCITALOPRAM OXALATE
  3. OLOPATADINE. [Concomitant]
     Active Substance: OLOPATADINE
  4. CACAO [Concomitant]
  5. AZELASTINE. [Concomitant]
     Active Substance: AZELASTINE HYDROCHLORIDE
  6. HYOSCYAMINE. [Concomitant]
     Active Substance: HYOSCYAMINE
     Dosage: EVERY 4 HOURS
  7. HYDROXYZINE PAMOATE. [Suspect]
     Active Substance: HYDROXYZINE PAMOATE
     Dosage: 25 MG 1X/DAY AT BEDTIME
     Route: 048
     Dates: start: 201812
  8. ZITHROMAX [Concomitant]
     Active Substance: AZITHROMYCIN DIHYDRATE
  9. SASAPRILLA [Concomitant]
  10. TIZANIDINE. [Concomitant]
     Active Substance: TIZANIDINE
  11. MELOXICAM. [Concomitant]
     Active Substance: MELOXICAM
  12. MILK THISTLE [Concomitant]
     Active Substance: DIETARY SUPPLEMENT\HERBALS\MILK THISTLE

REACTIONS (7)
  - Bladder spasm [Recovered/Resolved]
  - Pollakiuria [Recovered/Resolved]
  - Bladder pain [Recovered/Resolved]
  - Drug ineffective for unapproved indication [Recovered/Resolved]
  - Cystitis [Recovered/Resolved]
  - Product substitution issue [Recovered/Resolved]
  - Micturition urgency [Recovered/Resolved]

NARRATIVE: CASE EVENT DATE: 201812
